FAERS Safety Report 9175433 (Version 1)
Quarter: 2013Q1

REPORT INFORMATION
  Report Type: Spontaneous
  Country: FR (occurrence: FR)
  Receive Date: 20130320
  Receipt Date: 20130320
  Transmission Date: 20140127
  Serious: Yes (Hospitalization, Other)
  Sender: FDA-Public Use
  Company Number: FR-ROCHE-1203043

PATIENT
  Age: 86 Year
  Sex: Male

DRUGS (6)
  1. LUCENTIS [Suspect]
     Indication: AGE-RELATED MACULAR DEGENERATION
     Route: 050
     Dates: start: 20081204
  2. LASILIX [Concomitant]
     Route: 065
  3. GAVISCON (FRANCE) [Concomitant]
  4. METEOXANE [Concomitant]
  5. TANAKAN (FRANCE) [Concomitant]
  6. ZYLORIC [Concomitant]

REACTIONS (1)
  - Atrial fibrillation [Recovered/Resolved with Sequelae]
